FAERS Safety Report 16920120 (Version 1)
Quarter: 2019Q4

REPORT INFORMATION
  Report Type: Spontaneous
  Country: GB (occurrence: GB)
  Receive Date: 20191015
  Receipt Date: 20191015
  Transmission Date: 20200122
  Serious: Yes (Other)
  Sender: FDA-Public Use
  Company Number: GB-MYLANLABS-2019M1096605

PATIENT
  Age: 72 Year
  Sex: Female
  Weight: 56 kg

DRUGS (1)
  1. DOXYCYCLINE. [Suspect]
     Active Substance: DOXYCYCLINE
     Indication: PRODUCT USED FOR UNKNOWN INDICATION
     Dosage: TWO NOW THEN ONE DAILY
     Dates: start: 20190507, end: 20190514

REACTIONS (3)
  - Mucosal inflammation [Recovered/Resolved]
  - Oral disorder [Unknown]
  - Lip swelling [Unknown]

NARRATIVE: CASE EVENT DATE: 20190520
